FAERS Safety Report 6265104-X (Version None)
Quarter: 2009Q3

REPORT INFORMATION
  Report Type: 
  Country: None (occurrence: None)
  Receive Date: 20090713
  Receipt Date: 20090706
  Transmission Date: 20100115
  Serious: Yes (Disabling)
  Sender: FDA-Public Use
  Company Number: US-ASTRAZENECA-2009UW18905

PATIENT
  Age: 63 Year
  Sex: Female

DRUGS (7)
  1. CRESTOR [Suspect]
     Route: 048
     Dates: start: 20081201
  2. LYRICA [Concomitant]
  3. NEXIUM [Concomitant]
     Route: 048
  4. SYNTHROID [Concomitant]
     Dosage: 100 MCG
  5. LISINOPRIL [Concomitant]
  6. SYMBICORT [Concomitant]
     Route: 055
  7. XANAX [Concomitant]
     Dosage: PRN

REACTIONS (3)
  - DYSPNOEA [None]
  - OXYGEN SATURATION DECREASED [None]
  - WHEEZING [None]
